FAERS Safety Report 8544334-8 (Version None)
Quarter: 2012Q3

REPORT INFORMATION
  Report Type: 
  Country: None (occurrence: None)
  Receive Date: 20120719
  Receipt Date: 20120719
  Transmission Date: 20120928
  Serious: Yes (Other)
  Sender: FDA-Public Use
  Company Number: None

PATIENT
  Age: 54 Year
  Sex: Male
  Weight: 74.8435 kg

DRUGS (1)
  1. ROSUVASTATIN [Suspect]
     Indication: HYPERCHOLESTEROLAEMIA
     Dosage: 1 TAB DAILY PO
     Route: 048
     Dates: start: 20120515, end: 20120715

REACTIONS (3)
  - PYREXIA [None]
  - TYPE IV HYPERSENSITIVITY REACTION [None]
  - VOMITING [None]
